FAERS Safety Report 11440055 (Version 1)
Quarter: 2015Q3

REPORT INFORMATION
  Report Type: Spontaneous
  Country: US (occurrence: None)
  Receive Date: 20150831
  Receipt Date: 20150831
  Transmission Date: 20151125
  Serious: Yes (Congenital Anomaly)
  Sender: FDA-Public Use
  Company Number: None

PATIENT
  Age: 36 Year
  Sex: Male
  Weight: 70.31 kg

DRUGS (1)
  1. ZOLOFT [Suspect]
     Active Substance: SERTRALINE HYDROCHLORIDE

REACTIONS (11)
  - Ventricular septal defect [None]
  - Atrioventricular block complete [None]
  - Double outlet right ventricle [None]
  - Heterotaxia [None]
  - Congenital hepatomegaly [None]
  - Malformation venous [None]
  - Dextrocardia [None]
  - Congenital gastric anomaly [None]
  - Paternal drugs affecting foetus [None]
  - Spleen malformation [None]
  - Atrial septal defect [None]

NARRATIVE: CASE EVENT DATE: 20150630
